FAERS Safety Report 19577161 (Version 2)
Quarter: 2021Q3

REPORT INFORMATION
  Report Type: Other
  Country: IT (occurrence: IT)
  Receive Date: 20210719
  Receipt Date: 20210804
  Transmission Date: 20211014
  Serious: Yes (Other)
  Sender: FDA-Public Use
  Company Number: IT-ROCHE-2869803

PATIENT
  Sex: Female

DRUGS (4)
  1. PALEXIA [Concomitant]
     Active Substance: TAPENTADOL HYDROCHLORIDE
     Dosage: 50 MORNING/100 EVENING
  2. LYRICA [Concomitant]
     Active Substance: PREGABALIN
     Dosage: 25 IN THE MORNING 75 IN THE EVENING
  3. TACHIPIRINA [Concomitant]
     Active Substance: ACETAMINOPHEN
     Dosage: 1GX3
  4. OCRELIZUMAB. [Suspect]
     Active Substance: OCRELIZUMAB
     Indication: PRIMARY PROGRESSIVE MULTIPLE SCLEROSIS
     Dosage: NEXT INFUSION ON 22/MAR/2019, 19/SEP/2019, 12/AUG/2020 AND LAST INFUSION ON 10/MAR/2021
     Route: 065
     Dates: start: 20190308

REACTIONS (1)
  - Intervertebral discitis [Unknown]
